FAERS Safety Report 14554086 (Version 1)
Quarter: 2018Q1

REPORT INFORMATION
  Report Type: Spontaneous
  Country: US (occurrence: US)
  Receive Date: 20180208
  Receipt Date: 20180208
  Transmission Date: 20180509
  Serious: Yes (Hospitalization)
  Sender: FDA-Public Use
  Company Number: None

PATIENT
  Age: 52 Year
  Sex: Male
  Weight: 98 kg

DRUGS (3)
  1. SULFAMETHOXAZOLE/TRIMETHOPRIM [Suspect]
     Active Substance: SULFAMETHOXAZOLE\TRIMETHOPRIM
     Indication: NEUTROPENIA
     Dosage: DOSE - 800/160 MG
     Route: 048
     Dates: start: 20120504, end: 20120525
  2. SULFAMETHOXAZOLE/TRIMETHOPRIM [Suspect]
     Active Substance: SULFAMETHOXAZOLE\TRIMETHOPRIM
     Indication: THROMBOCYTOPENIA
     Dosage: DOSE - 800/160 MG
     Route: 048
     Dates: start: 20120504, end: 20120525
  3. SULFAMETHOXAZOLE/TRIMETHOPRIM [Suspect]
     Active Substance: SULFAMETHOXAZOLE\TRIMETHOPRIM
     Indication: LIVER FUNCTION TEST INCREASED
     Dosage: DOSE - 800/160 MG
     Route: 048
     Dates: start: 20120504, end: 20120525

REACTIONS (7)
  - Pyrexia [None]
  - Rash [None]
  - Hepatotoxicity [None]
  - Prostatitis [None]
  - Neutropenia [None]
  - Asthenia [None]
  - Thrombocytopenia [None]

NARRATIVE: CASE EVENT DATE: 20120525
